FAERS Safety Report 17762888 (Version 1)
Quarter: 2020Q2

REPORT INFORMATION
  Report Type: Report from Study
  Country: GB (occurrence: GB)
  Receive Date: 20200509
  Receipt Date: 20200509
  Transmission Date: 20200714
  Serious: Yes (Other)
  Sender: FDA-Public Use
  Company Number: GB-AMGEN-GBRSL2019200555

PATIENT
  Age: 47 Year
  Sex: Female

DRUGS (1)
  1. AMGEVITA [Suspect]
     Active Substance: ADALIMUMAB
     Indication: PRODUCT USED FOR UNKNOWN INDICATION
     Dosage: 40 MILLIGRAM, Q2WK
     Route: 065

REACTIONS (4)
  - Eczema [Unknown]
  - Nasopharyngitis [Unknown]
  - Viral infection [Unknown]
  - Systemic lupus erythematosus [Unknown]

NARRATIVE: CASE EVENT DATE: 2018
